FAERS Safety Report 12203046 (Version 4)
Quarter: 2016Q4

REPORT INFORMATION
  Report Type: Spontaneous
  Country: JP (occurrence: JP)
  Receive Date: 20160323
  Receipt Date: 20161018
  Transmission Date: 20170207
  Serious: Yes (Hospitalization, Other)
  Sender: FDA-Public Use
  Company Number: JP-VIFOR (INTERNATIONAL) INC.-VIT-2016-01255

PATIENT
  Age: 44 Year
  Sex: Male

DRUGS (14)
  1. CELLCEPT [Suspect]
     Active Substance: MYCOPHENOLATE MOFETIL\MYCOPHENOLATE MOFETIL HYDROCHLORIDE
     Indication: DIABETIC NEPHROPATHY
     Route: 048
     Dates: start: 2003
  2. BLOPRESS [Concomitant]
     Active Substance: CANDESARTAN CILEXETIL
     Indication: HYPERTENSION
     Route: 048
     Dates: start: 2008, end: 2012
  3. MIRCERA [Suspect]
     Active Substance: METHOXY POLYETHYLENE GLYCOL-EPOETIN BETA
     Route: 058
     Dates: start: 20130403, end: 201308
  4. NEORAL [Concomitant]
     Active Substance: CYCLOSPORINE
     Indication: DIABETIC NEPHROPATHY
     Route: 048
     Dates: start: 2003
  5. CELLCEPT [Suspect]
     Active Substance: MYCOPHENOLATE MOFETIL\MYCOPHENOLATE MOFETIL HYDROCHLORIDE
     Dosage: DOSAGE UNCERTAIN
     Route: 048
  6. MEDROL [Concomitant]
     Active Substance: METHYLPREDNISOLONE
     Indication: DIABETIC NEPHROPATHY
     Route: 048
     Dates: start: 2003
  7. INSULIN [Concomitant]
     Active Substance: INSULIN NOS
     Indication: DIABETES MELLITUS
     Dates: start: 1995
  8. MEVALOTIN [Concomitant]
     Active Substance: PRAVASTATIN SODIUM
     Route: 048
  9. AMLODIN [Concomitant]
     Active Substance: AMLODIPINE BESYLATE
     Indication: HYPERTENSION
     Route: 048
  10. MIRCERA [Suspect]
     Active Substance: METHOXY POLYETHYLENE GLYCOL-EPOETIN BETA
     Indication: NEPHROGENIC ANAEMIA
     Route: 058
     Dates: start: 20120718, end: 20120815
  11. MIRCERA [Suspect]
     Active Substance: METHOXY POLYETHYLENE GLYCOL-EPOETIN BETA
     Route: 058
     Dates: start: 20121121, end: 20130220
  12. FEBURIC [Concomitant]
     Active Substance: FEBUXOSTAT
     Indication: HYPERURICAEMIA
     Route: 048
     Dates: start: 201211, end: 201407
  13. MIRCERA [Suspect]
     Active Substance: METHOXY POLYETHYLENE GLYCOL-EPOETIN BETA
     Route: 058
     Dates: start: 20130918
  14. TAKEPRON [Concomitant]
     Active Substance: LANSOPRAZOLE
     Route: 048

REACTIONS (5)
  - Osteomyelitis [Recovering/Resolving]
  - Erythroblast count decreased [Unknown]
  - Infection [Not Recovered/Not Resolved]
  - Anaemia [Unknown]
  - Aplasia pure red cell [Recovering/Resolving]

NARRATIVE: CASE EVENT DATE: 20150215
